FAERS Safety Report 5891596-1 (Version None)
Quarter: 2008Q3

REPORT INFORMATION
  Report Type: 
  Country: None (occurrence: None)
  Receive Date: 20080918
  Receipt Date: 20080905
  Transmission Date: 20090109
  Serious: Yes (Death)
  Sender: FDA-Public Use
  Company Number: 2008002039

PATIENT
  Age: 64 Year
  Sex: Male

DRUGS (9)
  1. ERLOTINIB (ERLOTINIB) (TABLET) (ERLOTINIB) [Suspect]
     Dosage: (150 MG, QD), ORAL
     Route: 048
     Dates: end: 20080810
  2. DURAGESIC-100 [Concomitant]
  3. MORPHINE [Concomitant]
  4. LERCAN [Concomitant]
  5. ZOLPIDEM TARTRATE [Concomitant]
  6. FORLAX (MACROGOL) [Concomitant]
  7. ACETAMINOPHEN [Concomitant]
  8. LASIX [Concomitant]
  9. DIFFU-K [Concomitant]

REACTIONS (2)
  - LUNG NEOPLASM MALIGNANT [None]
  - MALIGNANT NEOPLASM PROGRESSION [None]
